FAERS Safety Report 16024181 (Version 6)
Quarter: 2019Q3

REPORT INFORMATION
  Report Type: Spontaneous
  Country: US (occurrence: US)
  Receive Date: 20190301
  Receipt Date: 20190828
  Transmission Date: 20191004
  Serious: Yes (Hospitalization)
  Sender: FDA-Public Use
  Company Number: US-VIFOR (INTERNATIONAL) INC.-VIT-2019-01735

PATIENT
  Age: 75 Year
  Sex: Male

DRUGS (6)
  1. POLYETHYLENE GLYCOL 1450 [Concomitant]
  2. SERTRALINE HCL [Concomitant]
     Active Substance: SERTRALINE HYDROCHLORIDE
  3. VELTASSA [Suspect]
     Active Substance: PATIROMER
     Indication: HYPERKALAEMIA
     Route: 048
     Dates: start: 20181220
  4. LYRICA [Concomitant]
     Active Substance: PREGABALIN
  5. LORATADINE. [Concomitant]
     Active Substance: LORATADINE
  6. METOCLOPRAMIDE HCL [Concomitant]
     Active Substance: METOCLOPRAMIDE HYDROCHLORIDE

REACTIONS (6)
  - Blood potassium increased [Unknown]
  - Hospitalisation [Unknown]
  - Pneumonia [Recovered/Resolved]
  - Fall [Unknown]
  - Dyspnoea [Recovered/Resolved]
  - Influenza [Recovered/Resolved]

NARRATIVE: CASE EVENT DATE: 2019
